FAERS Safety Report 5257611-3 (Version None)
Quarter: 2007Q1

REPORT INFORMATION
  Report Type: 
  Country: None (occurrence: None)
  Receive Date: 20070307
  Receipt Date: 20070104
  Transmission Date: 20070707
  Serious: No
  Sender: FDA-Public Use
  Company Number: US-GLAXOSMITHKLINE-A0634135A

PATIENT
  Age: 67 Year
  Sex: Female

DRUGS (11)
  1. REQUIP [Suspect]
     Indication: RESTLESS LEGS SYNDROME
     Dosage: 1TAB SEE DOSAGE TEXT
     Route: 048
  2. INDERAL [Concomitant]
  3. COZAAR [Concomitant]
  4. TRICOR [Concomitant]
  5. ZOCOR [Concomitant]
  6. METFORMIN HCL [Concomitant]
  7. LASIX [Concomitant]
  8. GLUCOSAMINE + CHONDROITIN [Concomitant]
  9. CALCIUM [Concomitant]
  10. STRESS TAB [Concomitant]
  11. FLECAINIDE ACETATE [Concomitant]

REACTIONS (1)
  - DRUG INEFFECTIVE [None]
